FAERS Safety Report 22088926 (Version 1)
Quarter: 2023Q1

REPORT INFORMATION
  Report Type: Spontaneous
  Country: US (occurrence: None)
  Receive Date: 20230310
  Receipt Date: 20230310
  Transmission Date: 20230417
  Serious: No
  Sender: FDA-Public Use
  Company Number: None

PATIENT
  Age: 23 Year
  Sex: Male
  Weight: 69.75 kg

DRUGS (5)
  1. VYVANSE [Suspect]
     Active Substance: LISDEXAMFETAMINE DIMESYLATE
     Indication: Attention deficit hyperactivity disorder
     Dosage: OTHER QUANTITY : 30 CAPSULE(S);?
     Route: 048
     Dates: start: 20230110
  2. GUANFACINE [Concomitant]
     Active Substance: GUANFACINE
  3. FINASTERIDE [Concomitant]
     Active Substance: FINASTERIDE
  4. VITAMIN D [Concomitant]
     Active Substance: VITAMIN D NOS
  5. FISH OIL [Concomitant]
     Active Substance: FISH OIL

REACTIONS (8)
  - Headache [None]
  - Dyspnoea [None]
  - Nightmare [None]
  - Fatigue [None]
  - Feeling abnormal [None]
  - Drug ineffective [None]
  - Product formulation issue [None]
  - Suspected COVID-19 [None]

NARRATIVE: CASE EVENT DATE: 20230210
